FAERS Safety Report 24594191 (Version 1)
Quarter: 2024Q4

REPORT INFORMATION
  Report Type: Spontaneous
  Country: SE (occurrence: SE)
  Receive Date: 20241108
  Receipt Date: 20241108
  Transmission Date: 20250115
  Serious: Yes (Hospitalization)
  Sender: AMGEN
  Company Number: None

PATIENT
  Sex: Male
  Weight: 82 kg

DRUGS (3)
  1. REPATHA [Suspect]
     Active Substance: EVOLOCUMAB
     Indication: Angina pectoris
     Dosage: 140 MILLIGRAM, Q2WK (1 INJECTION EVERY 14 DAYS DOSE: LATER DOSE)
     Route: 058
     Dates: start: 20211207, end: 20241015
  2. Lercanidipine accord [Concomitant]
     Dosage: 10 MILLIGRAM, QD (1*1)
     Route: 048
     Dates: start: 20180520
  3. ASPIRIN [Concomitant]
     Active Substance: ASPIRIN
     Dosage: 75 MILLIGRAM, QD (1*1)
     Route: 048
     Dates: start: 20180520

REACTIONS (3)
  - Herpes zoster [Recovered/Resolved]
  - Pharyngitis [Not Recovered/Not Resolved]
  - Fatigue [Recovering/Resolving]

NARRATIVE: CASE EVENT DATE: 20220820
